FAERS Safety Report 16222612 (Version 1)
Quarter: 2019Q2

REPORT INFORMATION
  Report Type: Spontaneous
  Country: US (occurrence: US)
  Receive Date: 20190419
  Receipt Date: 20190419
  Transmission Date: 20190711
  Serious: Yes (Hospitalization)
  Sender: FDA-Public Use
  Company Number: None

PATIENT
  Age: 74 Year
  Sex: Male

DRUGS (9)
  1. FLOMAX [Concomitant]
     Active Substance: TAMSULOSIN HYDROCHLORIDE
  2. LEXAPRO [Concomitant]
     Active Substance: ESCITALOPRAM OXALATE
  3. SIROLIMUS. [Suspect]
     Active Substance: SIROLIMUS
     Indication: RENAL TRANSPLANT
     Route: 048
     Dates: start: 20141126
  4. COREG [Concomitant]
     Active Substance: CARVEDILOL
  5. PLAVIX [Concomitant]
     Active Substance: CLOPIDOGREL BISULFATE
  6. PREDNISONE. [Concomitant]
     Active Substance: PREDNISONE
  7. RESTORIL [Concomitant]
     Active Substance: TEMAZEPAM
  8. LISINOPRIL. [Concomitant]
     Active Substance: LISINOPRIL
  9. REGLAN [Concomitant]
     Active Substance: METOCLOPRAMIDE HYDROCHLORIDE

REACTIONS (1)
  - Fluid retention [None]

NARRATIVE: CASE EVENT DATE: 20190402
